FAERS Safety Report 24882869 (Version 2)
Quarter: 2025Q2

REPORT INFORMATION
  Report Type: Spontaneous
  Country: KR (occurrence: KR)
  Receive Date: 20250124
  Receipt Date: 20250619
  Transmission Date: 20250716
  Serious: Yes (Other)
  Sender: MERCK SHARP & DOHME LLC
  Company Number: None

PATIENT
  Age: 64 Year
  Sex: Male

DRUGS (3)
  1. PEMBROLIZUMAB [Suspect]
     Active Substance: PEMBROLIZUMAB
     Indication: Lung neoplasm malignant
     Dosage: DOSE DESCRIPTION : 200 MILLIGRAM, Q21 DAYS?DAILY DOSE : 9.4 MILLIGRAM?REGIMEN DOSE : 200  MILLIGRAM
     Dates: start: 20231130
  2. CARBOPLATIN [Suspect]
     Active Substance: CARBOPLATIN
     Indication: Lung neoplasm malignant
     Dosage: DOSE DESCRIPTION : 710.7 MILLIGRAM, Q21 DAYS?DAILY DOSE : 33.403 MILLIGRAM?REGIMEN DOSE : 710.7  ...
     Dates: start: 20231130
  3. PACLITAXEL [Suspect]
     Active Substance: PACLITAXEL
     Indication: Lung neoplasm malignant
     Dosage: DOSE DESCRIPTION : 346.5 MILLIGRAM, Q21 DAYS?DAILY DOSE : 16.285 MILLIGRAM?REGIMEN DOSE : 346.5  ...
     Dates: start: 20231130

REACTIONS (2)
  - Neuropathy peripheral [Recovered/Resolved]
  - Palmar-plantar erythrodysaesthesia syndrome [Recovered/Resolved]

NARRATIVE: CASE EVENT DATE: 20231221
